FAERS Safety Report 25006131 (Version 1)
Quarter: 2025Q1

REPORT INFORMATION
  Report Type: Spontaneous
  Country: FR (occurrence: FR)
  Receive Date: 20250224
  Receipt Date: 20250224
  Transmission Date: 20250408
  Serious: Yes (Hospitalization)
  Sender: PFIZER
  Company Number: None

PATIENT
  Age: 79 Year
  Sex: Female
  Weight: 52 kg

DRUGS (10)
  1. CARBOPLATIN [Suspect]
     Active Substance: CARBOPLATIN
     Indication: Lung neoplasm malignant
     Route: 042
     Dates: start: 20250117, end: 20250117
  2. ATOVAQUONE [Suspect]
     Active Substance: ATOVAQUONE
     Indication: Antifungal prophylaxis
     Dosage: 750 MG, 2X/DAY (FREQ:12 HOURS)
     Route: 048
     Dates: start: 20250122
  3. MIANSERIN HYDROCHLORIDE [Suspect]
     Active Substance: MIANSERIN HYDROCHLORIDE
     Indication: Depression
     Dosage: 30 MG, 1X/DAY
     Route: 048
     Dates: start: 20250125
  4. PACLITAXEL [Suspect]
     Active Substance: PACLITAXEL
     Indication: Lung neoplasm malignant
     Route: 042
     Dates: start: 20250117, end: 20250117
  5. KEYTRUDA [Suspect]
     Active Substance: PEMBROLIZUMAB
     Indication: Lung neoplasm malignant
     Route: 042
     Dates: start: 20250117, end: 20250117
  6. KRAZATI [Suspect]
     Active Substance: ADAGRASIB
     Indication: Lung neoplasm malignant
     Dosage: 200 MG, 2X/DAY (FREQ:12 HOURS)
     Route: 048
     Dates: start: 20250124, end: 20250127
  7. KRAZATI [Suspect]
     Active Substance: ADAGRASIB
     Dosage: 400 MG, 2X/DAY (FREQ:12 HOURS)
     Route: 048
     Dates: start: 20250127
  8. LEVOTHYROXINE [Concomitant]
     Active Substance: LEVOTHYROXINE
  9. ATORVASTATIN [Concomitant]
     Active Substance: ATORVASTATIN
  10. ESCITALOPRAM [Concomitant]
     Active Substance: ESCITALOPRAM OXALATE

REACTIONS (1)
  - Rash maculo-papular [Not Recovered/Not Resolved]

NARRATIVE: CASE EVENT DATE: 20250131
